FAERS Safety Report 9649878 (Version 1)
Quarter: 2013Q4

REPORT INFORMATION
  Report Type: Spontaneous
  Country: US (occurrence: US)
  Receive Date: 20131028
  Receipt Date: 20131028
  Transmission Date: 20140711
  Serious: Yes (Other)
  Sender: FDA-Public Use
  Company Number: US-NAPPMUNDI-USA-2013-0100954

PATIENT
  Age: 65 Year
  Sex: Male

DRUGS (2)
  1. OXYCONTIN TABLETS [Suspect]
     Indication: PAIN
     Dosage: 100 MG, DAILY
     Route: 048
  2. OXYCONTIN TABLETS [Suspect]
     Dosage: 120 MG, DAILY
     Route: 048
     Dates: start: 2001

REACTIONS (2)
  - Drug withdrawal syndrome [Unknown]
  - Drug dependence [Unknown]
